FAERS Safety Report 18087778 (Version 2)
Quarter: 2020Q3

REPORT INFORMATION
  Report Type: Spontaneous
  Country: CN (occurrence: CN)
  Receive Date: 20200729
  Receipt Date: 20200924
  Transmission Date: 20201103
  Serious: Yes (Life-Threatening, Hospitalization)
  Sender: FDA-Public Use
  Company Number: CN-GE HEALTHCARE LIFE SCIENCES-2020CSU003000

PATIENT

DRUGS (5)
  1. OMNIPAQUE [Suspect]
     Active Substance: IOHEXOL
     Indication: ANGIOCARDIOGRAM
     Dosage: 58 ML AT THE RATE OF 4.8 ML/SEC, ONCE
     Route: 040
     Dates: start: 20200708, end: 20200708
  2. CORLENTOR [Concomitant]
     Active Substance: IVABRADINE HYDROCHLORIDE
  3. OMNIPAQUE [Suspect]
     Active Substance: IOHEXOL
     Indication: SINUS ARRHYTHMIA
  4. OMNIPAQUE [Suspect]
     Active Substance: IOHEXOL
     Indication: BUNDLE BRANCH BLOCK BILATERAL
  5. OMNIPAQUE [Suspect]
     Active Substance: IOHEXOL
     Indication: EXTRASYSTOLES

REACTIONS (2)
  - Hypoxic-ischaemic encephalopathy [Recovering/Resolving]
  - Anaphylactic shock [Not Recovered/Not Resolved]

NARRATIVE: CASE EVENT DATE: 20200708
